FAERS Safety Report 17339876 (Version 11)
Quarter: 2020Q2

REPORT INFORMATION
  Report Type: Spontaneous
  Country: JP (occurrence: JP)
  Receive Date: 20200129
  Receipt Date: 20200528
  Transmission Date: 20200713
  Serious: Yes (Other)
  Sender: FDA-Public Use
  Company Number: JP-JNJFOC-20191103282

PATIENT
  Sex: Male

DRUGS (11)
  1. TRAMADOL/APAP [Suspect]
     Active Substance: ACETAMINOPHEN\TRAMADOL
     Route: 048
     Dates: start: 20200130, end: 20200203
  2. TRAMADOL/APAP [Suspect]
     Active Substance: ACETAMINOPHEN\TRAMADOL
     Dosage: IN THE MORNING AND EVENING
     Route: 048
  3. TRAMADOL/APAP [Suspect]
     Active Substance: ACETAMINOPHEN\TRAMADOL
     Route: 048
     Dates: start: 20200305
  4. TRAMADOL/APAP [Suspect]
     Active Substance: ACETAMINOPHEN\TRAMADOL
     Dosage: IN THE MORNING AND EVENING
     Route: 048
  5. TRAMADOL/APAP [Suspect]
     Active Substance: ACETAMINOPHEN\TRAMADOL
     Dosage: IN THE MORNING AND EVENING
     Route: 048
  6. METHYCOBAL [Concomitant]
     Active Substance: METHYLCOBALAMIN
     Indication: PRODUCT USED FOR UNKNOWN INDICATION
     Dosage: MECOBALAMIN
     Route: 065
  7. TRAMADOL/APAP [Suspect]
     Active Substance: ACETAMINOPHEN\TRAMADOL
     Indication: PAIN
     Dosage: IN THE MORNING AND EVENING
     Route: 048
     Dates: start: 20191013
  8. TRAMADOL/APAP [Suspect]
     Active Substance: ACETAMINOPHEN\TRAMADOL
     Dosage: IN THE MORNING AND EVENING
     Route: 048
     Dates: start: 20200402, end: 20200506
  9. TRAMADOL/APAP [Suspect]
     Active Substance: ACETAMINOPHEN\TRAMADOL
     Route: 048
     Dates: start: 202005
  10. LOXONIN [Concomitant]
     Active Substance: LOXOPROFEN SODIUM
     Indication: PRODUCT USED FOR UNKNOWN INDICATION
     Dosage: UNKNOWN
     Route: 065
  11. NEUROTROPIN [Concomitant]
     Active Substance: NEUROTROPIN
     Indication: PRODUCT USED FOR UNKNOWN INDICATION
     Dosage: AN EXTRACT OBTAINED FROM INFLAMMATORY RABBIT SKIN INOCULATED BY VACCINIA VIRUS
     Route: 065

REACTIONS (13)
  - Weight increased [Unknown]
  - Renal impairment [Unknown]
  - Hunger [Unknown]
  - Urine output decreased [Recovering/Resolving]
  - Treatment noncompliance [Unknown]
  - Increased appetite [Unknown]
  - Withdrawal syndrome [Not Recovered/Not Resolved]
  - Dizziness [Unknown]
  - Constipation [Recovering/Resolving]
  - Depressive symptom [Unknown]
  - Anxiety [Unknown]
  - Somnolence [Not Recovered/Not Resolved]
  - Insomnia [Unknown]

NARRATIVE: CASE EVENT DATE: 201910
